FAERS Safety Report 22098703 (Version 1)
Quarter: 2023Q1

REPORT INFORMATION
  Report Type: Spontaneous
  Country: US (occurrence: US)
  Receive Date: 20230315
  Receipt Date: 20230315
  Transmission Date: 20230417
  Serious: No
  Sender: FDA-Public Use
  Company Number: US-BEH-2023156231

PATIENT
  Age: 54 Year
  Sex: Male

DRUGS (2)
  1. PRIVIGEN [Suspect]
     Active Substance: HUMAN IMMUNOGLOBULIN G
     Indication: Musculoskeletal disorder
     Dosage: 40 GRAM, QD
     Route: 042
     Dates: start: 202302
  2. PRIVIGEN [Suspect]
     Active Substance: HUMAN IMMUNOGLOBULIN G
     Dosage: UNK
     Route: 042
     Dates: start: 20230303

REACTIONS (4)
  - Headache [Recovering/Resolving]
  - Nausea [Unknown]
  - No adverse event [Unknown]
  - Off label use [Unknown]
